FAERS Safety Report 7335016-9 (Version None)
Quarter: 2011Q1

REPORT INFORMATION
  Report Type: 
  Country: None (occurrence: None)
  Receive Date: 20110307
  Receipt Date: 20110224
  Transmission Date: 20110831
  Serious: Yes (Disabling)
  Sender: FDA-Public Use
  Company Number: US-BAXTER-2010BH029373

PATIENT
  Age: 70 Year
  Sex: Female
  Weight: 77 kg

DRUGS (10)
  1. HYDRALAZINE [Concomitant]
     Route: 048
     Dates: start: 20090921
  2. GABAPENTIN [Concomitant]
     Route: 048
  3. SERTRALINE [Concomitant]
     Route: 048
     Dates: start: 20090921
  4. LOPID [Concomitant]
  5. ATENOLOL [Concomitant]
     Dates: start: 20090921
  6. COZAAR [Concomitant]
     Route: 048
     Dates: start: 20090921
  7. GAMMAGARD LIQUID [Suspect]
     Indication: OFF LABEL USE
     Route: 042
     Dates: start: 20090921, end: 20101008
  8. AMLODIPINE [Concomitant]
     Route: 048
     Dates: start: 20090921
  9. LISINOPRIL [Concomitant]
     Route: 048
     Dates: start: 20090921
  10. GAMMAGARD LIQUID [Suspect]
     Indication: CHRONIC INFLAMMATORY DEMYELINATING POLYRADICULONEUROPATHY
     Route: 042
     Dates: start: 20090921, end: 20101008

REACTIONS (3)
  - INFLUENZA LIKE ILLNESS [None]
  - HEADACHE [None]
  - VISION BLURRED [None]
